FAERS Safety Report 6132366 (Version 16)
Quarter: 2014Q1

REPORT INFORMATION
  Report Type: Spontaneous
  Country: US (occurrence: US)
  Receive Date: 20060921
  Receipt Date: 20140321
  Transmission Date: 20141002
  Serious: Yes (Hospitalization, Other)
  Sender: FDA-Public Use
  Company Number: PHEH2006US11631

PATIENT
  Age: 58 Year
  Sex: Female

DRUGS (25)
  1. ZOMETA [Suspect]
     Route: 042
  2. AREDIA [Suspect]
     Route: 042
  3. OXYCONTIN [Concomitant]
  4. AUGMENTAN ORAL [Concomitant]
     Route: 048
  5. COUMADIN ^BOOTS^ [Concomitant]
  6. HERCEPTIN ^GENENTECH^ [Concomitant]
  7. FLONASE [Concomitant]
  8. COMPAZINE [Concomitant]
  9. DECADRON                                /CAN/ [Concomitant]
  10. ALTACE [Concomitant]
     Dosage: 10 MG, BID
  11. NEURONTIN [Concomitant]
  12. FASLODEX [Concomitant]
     Indication: BREAST CANCER METASTATIC
  13. TAXOTERE [Concomitant]
     Indication: BREAST CANCER METASTATIC
  14. ADRIAMYCIN [Concomitant]
     Indication: BREAST CANCER METASTATIC
  15. NAVELBINE ^ASTA MEDICA^ [Concomitant]
     Indication: BREAST CANCER METASTATIC
  16. XELODA [Concomitant]
     Indication: BREAST CANCER METASTATIC
     Dates: end: 200504
  17. AROMASIN [Concomitant]
     Indication: BREAST CANCER METASTATIC
  18. ARANESP [Concomitant]
  19. REQUIP [Concomitant]
  20. TAMOXIFEN [Concomitant]
  21. DARVOCET-N [Concomitant]
  22. AMBIEN [Concomitant]
  23. NEXIUM [Concomitant]
  24. LASIX [Concomitant]
  25. K-DUR [Concomitant]

REACTIONS (85)
  - Cardiac failure congestive [Unknown]
  - Cardiomegaly [Unknown]
  - Osteonecrosis of jaw [Unknown]
  - Breast cancer metastatic [Unknown]
  - Pulmonary mass [Unknown]
  - Metastases to liver [Unknown]
  - Metastases to bone [Unknown]
  - Metastasis [Unknown]
  - Metastases to central nervous system [Unknown]
  - Spinal compression fracture [Unknown]
  - Pericardial effusion [Unknown]
  - Pulmonary oedema [Unknown]
  - Hypertension [Unknown]
  - Myositis [Unknown]
  - Joint effusion [Unknown]
  - Musculoskeletal pain [Unknown]
  - Anaemia [Unknown]
  - Lung infiltration [Unknown]
  - Cholelithiasis [Unknown]
  - Renal cyst [Unknown]
  - Dyspnoea [Unknown]
  - Brachial plexopathy [Unknown]
  - Muscular weakness [Unknown]
  - Uterine prolapse [Unknown]
  - Pelvic pain [Unknown]
  - Uterine atony [Unknown]
  - Respiratory failure [Unknown]
  - Pneumonia [Unknown]
  - Mitral valve incompetence [Unknown]
  - Pulmonary hypertension [Unknown]
  - Left ventricular hypertrophy [Unknown]
  - Escherichia infection [Unknown]
  - Enterococcal infection [Unknown]
  - Pleural effusion [Unknown]
  - Urine output decreased [Unknown]
  - Fluid overload [Unknown]
  - Neutropenia [Unknown]
  - Febrile neutropenia [Unknown]
  - Bone lesion [Unknown]
  - Osteoarthritis [Unknown]
  - Glaucoma [Unknown]
  - Ocular hypertension [Unknown]
  - Dry eye [Unknown]
  - Headache [Unknown]
  - Nausea [Unknown]
  - Swelling [Unknown]
  - Rotator cuff syndrome [Unknown]
  - Animal bite [Unknown]
  - Cellulitis [Unknown]
  - Rhinitis [Unknown]
  - Gastrooesophageal reflux disease [Unknown]
  - Pollakiuria [Unknown]
  - Urinary incontinence [Unknown]
  - Micturition urgency [Unknown]
  - Nocturia [Unknown]
  - Constipation [Unknown]
  - Atrophic vulvovaginitis [Unknown]
  - Arteriosclerosis [Unknown]
  - Lymphangitis [Unknown]
  - Abscess limb [Unknown]
  - Lymphadenopathy [Unknown]
  - Lung disorder [Unknown]
  - Metastases to spine [Unknown]
  - Osteosclerosis [Unknown]
  - Rib fracture [Unknown]
  - Inguinal hernia [Unknown]
  - Cerebral atrophy [Unknown]
  - Kyphosis [Unknown]
  - Hypoxia [Unknown]
  - Pathological fracture [Unknown]
  - Spinal cord compression [Unknown]
  - Spinal osteoarthritis [Unknown]
  - Spondylolisthesis [Unknown]
  - Encephalomalacia [Unknown]
  - Gliosis [Unknown]
  - Intervertebral disc protrusion [Unknown]
  - Vertebral foraminal stenosis [Unknown]
  - Cervical spinal stenosis [Unknown]
  - Carotid artery stenosis [Unknown]
  - Fall [Unknown]
  - Goitre [Unknown]
  - Hypocalcaemia [Unknown]
  - Sinus tachycardia [Unknown]
  - Lymphatic disorder [Unknown]
  - Lymphoedema [Unknown]
